FAERS Safety Report 7239128-X (Version None)
Quarter: 2011Q1

REPORT INFORMATION
  Report Type: 
  Country: None (occurrence: None)
  Receive Date: 20110119
  Receipt Date: 20110119
  Transmission Date: 20110831
  Serious: Yes (Hospitalization)
  Sender: FDA-Public Use
  Company Number: None

PATIENT
  Age: 63 Year
  Sex: Male
  Weight: 102.5129 kg

DRUGS (6)
  1. POTASSIUM [Concomitant]
  2. LOVENOX [Concomitant]
  3. ALIMTA [Suspect]
     Indication: SARCOMA
     Dosage: 1135MG Q2 WKS, IV
     Route: 042
     Dates: start: 20101112
  4. TAXOTERE [Suspect]
     Indication: SARCOMA
     Dosage: 91MG Q2 WKS, IV
     Route: 042
     Dates: start: 20101112
  5. VITAMIN B-12 [Concomitant]
  6. FOLIC ACID [Concomitant]

REACTIONS (4)
  - PERICARDIAL EFFUSION [None]
  - METASTASES TO LUNG [None]
  - DISEASE PROGRESSION [None]
  - SMALL INTESTINAL OBSTRUCTION [None]
